FAERS Safety Report 10207290 (Version 1)
Quarter: 2014Q2

REPORT INFORMATION
  Report Type: Spontaneous
  Country: US (occurrence: US)
  Receive Date: 20140530
  Receipt Date: 20140530
  Transmission Date: 20141212
  Serious: No
  Sender: FDA-Public Use
  Company Number: US-GLAXOSMITHKLINE-A1029104A

PATIENT
  Age: 53 Year
  Sex: Female

DRUGS (4)
  1. VENTOLIN [Suspect]
     Indication: ASTHMA
     Dosage: 2PUFF AS REQUIRED
     Route: 055
     Dates: start: 2003
  2. ADVAIR [Concomitant]
  3. SIMVASTATIN [Concomitant]
  4. PRO-AIR [Concomitant]

REACTIONS (2)
  - Throat irritation [Recovered/Resolved]
  - Product quality issue [Unknown]
